FAERS Safety Report 25184721 (Version 1)
Quarter: 2025Q2

REPORT INFORMATION
  Report Type: Spontaneous
  Country: TR (occurrence: TR)
  Receive Date: 20250410
  Receipt Date: 20250410
  Transmission Date: 20250717
  Serious: No
  Sender: TOLMAR
  Company Number: TR-RECGATEWAY-2025002138

PATIENT
  Age: 69 Year
  Sex: Male

DRUGS (3)
  1. ELIGARD [Suspect]
     Active Substance: LEUPROLIDE ACETATE
     Indication: Prostate cancer
     Dates: start: 20250309
  2. ELIGARD [Suspect]
     Active Substance: LEUPROLIDE ACETATE
  3. ELIGARD [Suspect]
     Active Substance: LEUPROLIDE ACETATE

REACTIONS (2)
  - Intercepted product preparation error [Unknown]
  - Product physical consistency issue [Unknown]

NARRATIVE: CASE EVENT DATE: 20250309
